FAERS Safety Report 16215110 (Version 1)
Quarter: 2019Q2

REPORT INFORMATION
  Report Type: Report from Study
  Country: None (occurrence: AR)
  Receive Date: 20190419
  Receipt Date: 20190419
  Transmission Date: 20190711
  Serious: Yes (Hospitalization, Other)
  Sender: FDA-Public Use
  Company Number: AR-ABBVIE-19K-007-2751033-00

PATIENT
  Age: 23 Year
  Sex: Female

DRUGS (1)
  1. HUMIRA [Suspect]
     Active Substance: ADALIMUMAB
     Indication: COLITIS ULCERATIVE
     Route: 058
     Dates: start: 20180725

REACTIONS (10)
  - Pulmonary oedema [Unknown]
  - Malaise [Unknown]
  - Immunodeficiency [Unknown]
  - Pneumonia [Recovered/Resolved]
  - Dizziness [Unknown]
  - Fatigue [Unknown]
  - Urinary tract infection [Unknown]
  - Kidney infection [Recovered/Resolved]
  - Oropharyngeal pain [Unknown]
  - Gastrointestinal haemorrhage [Unknown]

NARRATIVE: CASE EVENT DATE: 201809
